FAERS Safety Report 16711084 (Version 2)
Quarter: 2019Q4

REPORT INFORMATION
  Report Type: Report from Study
  Country: US (occurrence: US)
  Receive Date: 20190816
  Receipt Date: 20191217
  Transmission Date: 20200122
  Serious: No
  Sender: FDA-Public Use
  Company Number: PHEH2019US033832

PATIENT
  Sex: Female

DRUGS (1)
  1. GILENYA [Suspect]
     Active Substance: FINGOLIMOD HYDROCHLORIDE
     Indication: PRODUCT USED FOR UNKNOWN INDICATION
     Route: 065

REACTIONS (3)
  - Peripheral swelling [Unknown]
  - Rhinorrhoea [Unknown]
  - Burning sensation [Unknown]
